FAERS Safety Report 5126707-9 (Version None)
Quarter: 2006Q4

REPORT INFORMATION
  Report Type: 
  Country: None (occurrence: None)
  Receive Date: 20061013
  Receipt Date: 20060911
  Transmission Date: 20070319
  Serious: Yes (Life-Threatening, Hospitalization)
  Sender: FDA-Public Use
  Company Number: 2006UW17846

PATIENT
  Age: 68 Year
  Sex: Female

DRUGS (5)
  1. CRESTOR [Suspect]
     Route: 048
     Dates: start: 20060523, end: 20060901
  2. ZITHROMAX [Concomitant]
     Dates: start: 20060907
  3. ACTONEL [Concomitant]
  4. BENICAR [Concomitant]
  5. LEVOXYL [Concomitant]

REACTIONS (9)
  - ANAEMIA [None]
  - DIARRHOEA HAEMORRHAGIC [None]
  - ENCEPHALITIS [None]
  - HYPOCALCAEMIA [None]
  - METABOLIC ACIDOSIS [None]
  - RENAL FAILURE [None]
  - RHABDOMYOLYSIS [None]
  - SEPSIS [None]
  - THROMBOCYTOPENIA [None]
